FAERS Safety Report 5578889-2 (Version None)
Quarter: 2008Q1

REPORT INFORMATION
  Report Type: 
  Country: None (occurrence: None)
  Receive Date: 20080102
  Receipt Date: 20071130
  Transmission Date: 20080703
  Serious: No
  Sender: FDA-Public Use
  Company Number: US-BAYER-200713642BWH

PATIENT

DRUGS (1)
  1. AVELOX [Suspect]
     Indication: CELLULITIS
     Route: 048

REACTIONS (2)
  - CELLULITIS [None]
  - PAIN [None]
